FAERS Safety Report 8684814 (Version 2)
Quarter: 2014Q1

REPORT INFORMATION
  Report Type: Spontaneous
  Country: US (occurrence: US)
  Receive Date: 20120726
  Receipt Date: 20140106
  Transmission Date: 20141002
  Serious: No
  Sender: FDA-Public Use
  Company Number: US-ASTRAZENECA-2011SE47231

PATIENT
  Age: 64 Year
  Sex: Female
  Weight: 59 kg

DRUGS (7)
  1. SEROQUEL [Suspect]
     Indication: SCHIZOPHRENIA, PARANOID TYPE
     Route: 048
  2. SEROQUEL [Suspect]
     Indication: SCHIZOPHRENIA, PARANOID TYPE
     Route: 048
  3. SEROQUEL [Suspect]
     Indication: SCHIZOPHRENIA, PARANOID TYPE
     Route: 048
  4. SEROQUEL [Suspect]
     Indication: SCHIZOPHRENIA, PARANOID TYPE
     Route: 048
  5. SEROQUEL [Suspect]
     Indication: SCHIZOPHRENIA, PARANOID TYPE
     Route: 048
  6. RISPERDAL [Concomitant]
     Indication: PSYCHIATRIC SYMPTOM
     Dosage: DAILY
  7. RISPERDAL [Concomitant]
     Indication: PSYCHIATRIC SYMPTOM

REACTIONS (10)
  - Anxiety [Unknown]
  - Hallucination, auditory [Unknown]
  - Malaise [Unknown]
  - Fear [Unknown]
  - Blood disorder [Unknown]
  - Depressed mood [Unknown]
  - Stress [Unknown]
  - Drug dispensing error [Unknown]
  - Intentional drug misuse [Unknown]
  - Drug dose omission [Unknown]
